FAERS Safety Report 4421963-4 (Version None)
Quarter: 2004Q3

REPORT INFORMATION
  Report Type: 
  Country: None (occurrence: None)
  Receive Date: 20040805
  Receipt Date: 20040723
  Transmission Date: 20050211
  Serious: Yes (Other)
  Sender: FDA-Public Use
  Company Number: A0519592A

PATIENT
  Age: 65 Year
  Sex: Female

DRUGS (7)
  1. COMMIT [Suspect]
     Indication: NICOTINE DEPENDENCE
     Dosage: 4 MG, FOUR TIMES PER DAY; TRANSB
     Route: 061
     Dates: start: 20040301
  2. NEBULIZER [Concomitant]
  3. RAMIPRIL [Concomitant]
  4. HYDROCHLOROTHIAZIDE [Concomitant]
  5. THEOPHYLLINE [Concomitant]
  6. THYROID TAB [Concomitant]
  7. ASPIRIN [Concomitant]

REACTIONS (3)
  - DRUG DEPENDENCE [None]
  - NICOTINE DEPENDENCE [None]
  - STRESS SYMPTOMS [None]
